FAERS Safety Report 11693084 (Version 1)
Quarter: 2015Q4

REPORT INFORMATION
  Report Type: Spontaneous
  Country: US (occurrence: None)
  Receive Date: 20151102
  Receipt Date: 20151102
  Transmission Date: 20160304
  Serious: Yes (Other)
  Sender: FDA-Public Use
  Company Number: None

PATIENT
  Age: 62 Year
  Sex: Female
  Weight: 113.4 kg

DRUGS (5)
  1. MULTAQ [Suspect]
     Active Substance: DRONEDARONE
     Indication: ATRIAL FIBRILLATION
     Route: 048
  2. MULTI VITAMIN [Concomitant]
     Active Substance: VITAMINS
  3. VITAMIN E [Concomitant]
     Active Substance: .ALPHA.-TOCOPHEROL
  4. VITAMIN D [Concomitant]
     Active Substance: CHOLECALCIFEROL
  5. XARELTO [Concomitant]
     Active Substance: RIVAROXABAN

REACTIONS (2)
  - Diarrhoea [None]
  - Alopecia [None]
